FAERS Safety Report 25113064 (Version 2)
Quarter: 2025Q1

REPORT INFORMATION
  Report Type: Spontaneous
  Country: US (occurrence: US)
  Receive Date: 20250324
  Receipt Date: 20250325
  Transmission Date: 20250409
  Serious: Yes (Other)
  Sender: PFIZER
  Company Number: US-PFIZER INC-PV202300207343

PATIENT
  Age: 68 Year
  Sex: Female

DRUGS (4)
  1. LORBRENA [Suspect]
     Active Substance: LORLATINIB
     Indication: Lung neoplasm malignant
     Dosage: TAKE 3 TABLETS (75 MG TOTAL) IN THE MORNING
     Route: 048
     Dates: start: 2023
  2. LORBRENA [Suspect]
     Active Substance: LORLATINIB
     Dosage: TAKE 2 TABLETS (50 MG TOTAL) DAILY
     Route: 048
  3. LORBRENA [Suspect]
     Active Substance: LORLATINIB
     Dosage: ALTERNATING WITH 50 MG (2 PILLS) AND 25 MG (ONE) EVERY DAY, ^ONE TWO, ONE TWO^
     Route: 048
     Dates: end: 20250303
  4. LORBRENA [Suspect]
     Active Substance: LORLATINIB
     Dosage: TAKE 2 TABLETS (50 MG TOTAL) BY MOUTH DAILY
     Route: 048

REACTIONS (10)
  - Hallucination [Unknown]
  - Paranoia [Recovering/Resolving]
  - Feeling abnormal [Recovered/Resolved]
  - Memory impairment [Unknown]
  - Oedema peripheral [Recovering/Resolving]
  - Vomiting [Unknown]
  - Diarrhoea [Unknown]
  - Nausea [Unknown]
  - Weight increased [Unknown]
  - Off label use [Unknown]
